FAERS Safety Report 11807588 (Version 2)
Quarter: 2016Q1

REPORT INFORMATION
  Report Type: Other
  Country: FR (occurrence: FR)
  Receive Date: 20151207
  Receipt Date: 20160111
  Transmission Date: 20160525
  Serious: Yes (Hospitalization)
  Sender: FDA-Public Use
  Company Number: FR-MYLANLABS-2015M1042709

PATIENT

DRUGS (3)
  1. CETIRIZINE [Suspect]
     Active Substance: CETIRIZINE HYDROCHLORIDE
     Indication: RASH MACULO-PAPULAR
     Dosage: 10 MG, UNK
     Dates: start: 20150913
  2. CETIRIZINE MYLAN PHARMA 10 MG, COMPRIM? PELLICUL? S?CABLE [Suspect]
     Active Substance: CETIRIZINE HYDROCHLORIDE
     Indication: RASH MACULO-PAPULAR
     Dosage: 10 MG, QD
     Route: 048
     Dates: start: 20150918, end: 20151013
  3. AUGMENTIN [Suspect]
     Active Substance: AMOXICILLIN\CLAVULANATE POTASSIUM
     Indication: BRONCHITIS
     Dosage: 1 G, TID
     Route: 048
     Dates: start: 20151012, end: 20151013

REACTIONS (3)
  - Neutropenia [Recovering/Resolving]
  - Eosinophilia [Recovering/Resolving]
  - Performance status decreased [Recovering/Resolving]

NARRATIVE: CASE EVENT DATE: 20151013
